FAERS Safety Report 8583316-7 (Version None)
Quarter: 2012Q3

REPORT INFORMATION
  Report Type: 
  Country: None (occurrence: None)
  Receive Date: 20120809
  Receipt Date: 20120731
  Transmission Date: 20120928
  Serious: Yes (Other)
  Sender: FDA-Public Use
  Company Number: JP-ABBOTT-12P-087-0963473-00

PATIENT
  Age: 6 Year
  Sex: Male

DRUGS (10)
  1. ZONISAMIDE [Concomitant]
     Indication: PRODUCT USED FOR UNKNOWN INDICATION
  2. CLONAZEPAM [Suspect]
     Indication: INFANTILE SPASMS
     Route: 065
  3. VALPROIC ACID [Suspect]
     Indication: INFANTILE SPASMS
     Route: 065
  4. BENZODIAZEPINE DERIVATIVES [Concomitant]
     Indication: PRODUCT USED FOR UNKNOWN INDICATION
  5. POTASSIUM BROMIDE [Concomitant]
     Indication: PRODUCT USED FOR UNKNOWN INDICATION
  6. SULTIAME [Concomitant]
     Indication: PRODUCT USED FOR UNKNOWN INDICATION
  7. PHENYTOIN [Suspect]
     Indication: INFANTILE SPASMS
     Route: 065
  8. CORTICOTROPIN [Concomitant]
     Indication: PRODUCT USED FOR UNKNOWN INDICATION
  9. PHENOBARBITAL TAB [Suspect]
     Indication: INFANTILE SPASMS
     Route: 065
  10. NITRAZEPAM [Concomitant]
     Indication: PRODUCT USED FOR UNKNOWN INDICATION

REACTIONS (3)
  - CONVULSION [None]
  - DRUG INEFFECTIVE [None]
  - FALL [None]
